FAERS Safety Report 10356529 (Version 1)
Quarter: 2014Q3

REPORT INFORMATION
  Report Type: Spontaneous
  Country: US (occurrence: US)
  Receive Date: 20140801
  Receipt Date: 20140801
  Transmission Date: 20150326
  Serious: Yes (Other)
  Sender: FDA-Public Use
  Company Number: US-PFIZER INC-2014214473

PATIENT
  Age: 27 Year
  Sex: Male
  Weight: 79.37 kg

DRUGS (1)
  1. XANAX [Suspect]
     Active Substance: ALPRAZOLAM
     Indication: ANXIETY
     Dosage: 2 MG, 3X/DAY
     Route: 048
     Dates: end: 1999

REACTIONS (6)
  - Feeling abnormal [Unknown]
  - Speech disorder [Unknown]
  - Hypertension [Unknown]
  - Mental impairment [Unknown]
  - Psychomotor hyperactivity [Unknown]
  - Convulsion [Unknown]

NARRATIVE: CASE EVENT DATE: 1999
